FAERS Safety Report 17021503 (Version 12)
Quarter: 2022Q4

REPORT INFORMATION
  Report Type: Spontaneous
  Country: US (occurrence: US)
  Receive Date: 20191112
  Receipt Date: 20221220
  Transmission Date: 20230113
  Serious: Yes (Hospitalization, Disabling, Other)
  Sender: FDA-Public Use
  Company Number: US-PFIZER INC-2019486279

PATIENT
  Age: 46 Year
  Sex: Female

DRUGS (2)
  1. XELJANZ XR [Suspect]
     Active Substance: TOFACITINIB CITRATE
     Indication: Arthritis
     Dosage: 11 MG
     Dates: start: 20220913
  2. XELJANZ XR [Suspect]
     Active Substance: TOFACITINIB CITRATE
     Dosage: 11 MG (FOR 1-2 WEEKS)

REACTIONS (14)
  - COVID-19 pneumonia [Unknown]
  - Infectious mononucleosis [Unknown]
  - Gait disturbance [Unknown]
  - General physical health deterioration [Unknown]
  - Illness [Unknown]
  - Mobility decreased [Unknown]
  - Speech disorder [Unknown]
  - Feeling abnormal [Unknown]
  - Pain [Unknown]
  - Malaise [Unknown]
  - Panic attack [Unknown]
  - Amnesia [Unknown]
  - Weight increased [Unknown]
  - Weight decreased [Unknown]
